FAERS Safety Report 11796751 (Version 1)
Quarter: 2015Q4

REPORT INFORMATION
  Report Type: Report from Study
  Country: US (occurrence: US)
  Receive Date: 20151203
  Receipt Date: 20151203
  Transmission Date: 20160305
  Serious: Yes (Hospitalization)
  Sender: FDA-Public Use
  Company Number: US-BIOGENIDEC-2015BI158649

PATIENT
  Age: 67 Year
  Sex: Male

DRUGS (8)
  1. LISINOPRIL. [Concomitant]
     Active Substance: LISINOPRIL
  2. CIALIS [Concomitant]
     Active Substance: TADALAFIL
  3. TECFIDERA [Suspect]
     Active Substance: DIMETHYL FUMARATE
     Indication: MULTIPLE SCLEROSIS
     Route: 048
     Dates: start: 201309
  4. NUVIGIL [Concomitant]
     Active Substance: ARMODAFINIL
  5. GLIPIZIDE. [Concomitant]
     Active Substance: GLIPIZIDE
  6. POTASSIUM [Concomitant]
     Active Substance: POTASSIUM
  7. SIMVASTATIN. [Concomitant]
     Active Substance: SIMVASTATIN
  8. VITAMIN D [Concomitant]
     Active Substance: CHOLECALCIFEROL

REACTIONS (2)
  - Renal surgery [Unknown]
  - Scar [Unknown]
